FAERS Safety Report 22105869 (Version 2)
Quarter: 2023Q1

REPORT INFORMATION
  Report Type: Spontaneous
  Country: NL (occurrence: NL)
  Receive Date: 20230317
  Receipt Date: 20230327
  Transmission Date: 20230418
  Serious: Yes (Other)
  Sender: FDA-Public Use
  Company Number: NL-OCTA-GAM05923NL

PATIENT
  Age: 71 Year
  Weight: 80 kg

DRUGS (1)
  1. OCTAGAM IMMUNE GLOBULIN (HUMAN) [Suspect]
     Active Substance: HUMAN IMMUNOGLOBULIN G
     Indication: Autoimmune haemolytic anaemia
     Dosage: TOTAL OF 4 FLACONS OF 200 ML PER TREATMENT
     Route: 042
     Dates: start: 20230220, end: 20230221

REACTIONS (2)
  - Hepatitis B antibody positive [Unknown]
  - Suspected transmission of an infectious agent via product [Unknown]

NARRATIVE: CASE EVENT DATE: 20230201
